FAERS Safety Report 14309083 (Version 1)
Quarter: 2017Q4

REPORT INFORMATION
  Report Type: Spontaneous
  Country: US (occurrence: US)
  Receive Date: 20171219
  Receipt Date: 20171219
  Transmission Date: 20180321
  Serious: No
  Sender: FDA-Public Use
  Company Number: None

PATIENT
  Age: 61 Year
  Sex: Male
  Weight: 73.03 kg

DRUGS (3)
  1. LEVETIRACETAM. [Suspect]
     Active Substance: LEVETIRACETAM
     Indication: SEIZURE
     Route: 048
     Dates: start: 20171218
  2. SIMVASTATIN. [Concomitant]
     Active Substance: SIMVASTATIN
  3. DILANTIN EXTENDED 100 MG CAPSULE [Concomitant]

REACTIONS (1)
  - Rash [None]
